FAERS Safety Report 15619997 (Version 1)
Quarter: 2018Q4

REPORT INFORMATION
  Report Type: Report from Study
  Country: DE (occurrence: DE)
  Receive Date: 20181115
  Receipt Date: 20181115
  Transmission Date: 20190205
  Serious: Yes (Other)
  Sender: FDA-Public Use
  Company Number: DE-EMD SERONO-9051796

PATIENT
  Sex: Male

DRUGS (1)
  1. SAIZEN [Suspect]
     Active Substance: SOMATROPIN
     Indication: GROWTH RETARDATION
     Route: 058
     Dates: start: 201704

REACTIONS (3)
  - Decreased immune responsiveness [Not Recovered/Not Resolved]
  - Device end of service [Unknown]
  - Device battery issue [Unknown]
